FAERS Safety Report 5328310-4 (Version None)
Quarter: 2007Q2

REPORT INFORMATION
  Report Type: 
  Country: None (occurrence: None)
  Receive Date: 20070518
  Receipt Date: 20070509
  Transmission Date: 20071010
  Serious: Yes (Hospitalization, Disabling)
  Sender: FDA-Public Use
  Company Number: CH-JNJFOC-20070502731

PATIENT
  Sex: Female

DRUGS (1)
  1. REMICADE [Suspect]
     Indication: POLYARTHRITIS
     Route: 042

REACTIONS (1)
  - CEREBRAL ISCHAEMIA [None]
